FAERS Safety Report 7111282-X (Version None)
Quarter: 2010Q4

REPORT INFORMATION
  Report Type: 
  Country: None (occurrence: None)
  Receive Date: 20101118
  Receipt Date: 20101108
  Transmission Date: 20110411
  Serious: Yes (Hospitalization)
  Sender: FDA-Public Use
  Company Number: GB-JNJFOC-20101104128

PATIENT
  Sex: Female
  Weight: 98 kg

DRUGS (5)
  1. USTEKINUMAB [Suspect]
     Indication: PSORIASIS
     Route: 058
  2. BENDROFLUAZIDE [Concomitant]
     Indication: ILL-DEFINED DISORDER
     Route: 065
  3. CO-CODAMOL [Concomitant]
     Indication: ILL-DEFINED DISORDER
     Route: 065
  4. IRBESARTAN [Concomitant]
     Indication: ILL-DEFINED DISORDER
     Route: 065
  5. PHENERGAN [Concomitant]
     Indication: ILL-DEFINED DISORDER
     Route: 065

REACTIONS (1)
  - PUSTULAR PSORIASIS [None]
